FAERS Safety Report 8077764-1 (Version None)
Quarter: 2012Q1

REPORT INFORMATION
  Report Type: 
  Country: None (occurrence: None)
  Receive Date: 20120127
  Receipt Date: 20120123
  Transmission Date: 20120608
  Serious: Yes (Other)
  Sender: FDA-Public Use
  Company Number: US-PFIZER INC-2012004125

PATIENT
  Sex: Female
  Weight: 54.422 kg

DRUGS (3)
  1. ANAPROX DS [Concomitant]
     Indication: ARTHRALGIA
     Dosage: UNK
     Dates: start: 20070108
  2. CHANTIX [Suspect]
     Indication: SMOKING CESSATION THERAPY
     Dosage: UNK
     Route: 048
     Dates: start: 20070101
  3. CHANTIX [Suspect]
     Dosage: 0.5 MG, 1X/DAY
     Route: 048
     Dates: start: 20090101, end: 20090101

REACTIONS (1)
  - HYPERTHYROIDISM [None]
